FAERS Safety Report 4604043-4 (Version None)
Quarter: 2005Q1

REPORT INFORMATION
  Report Type: 
  Country: None (occurrence: None)
  Receive Date: 20050309
  Receipt Date: 20050309
  Transmission Date: 20050727
  Serious: Yes (Life-Threatening, Hospitalization, Disabling)
  Sender: FDA-Public Use
  Company Number: None

PATIENT
  Sex: Male

DRUGS (1)
  1. COUMADIN [Suspect]
     Indication: HEART VALVE REPLACEMENT
     Dosage: 5MG PO DAILY
     Route: 048
     Dates: start: 19970101

REACTIONS (1)
  - INTERNATIONAL NORMALISED RATIO INCREASED [None]
